FAERS Safety Report 17561150 (Version 5)
Quarter: 2023Q4

REPORT INFORMATION
  Report Type: Spontaneous
  Country: US (occurrence: US)
  Receive Date: 20200319
  Receipt Date: 20231113
  Transmission Date: 20240109
  Serious: Yes (Hospitalization, Other)
  Sender: FDA-Public Use
  Company Number: US-GILEAD-2020-0455416

PATIENT
  Age: 61 Year
  Sex: Male

DRUGS (5)
  1. ATRIPLA [Suspect]
     Active Substance: EFAVIRENZ\EMTRICITABINE\TENOFOVIR DISOPROXIL FUMARATE
     Indication: HIV infection
     Dosage: UNK
     Route: 048
     Dates: start: 20120525, end: 20180626
  2. DESCOVY [Concomitant]
     Active Substance: EMTRICITABINE\TENOFOVIR ALAFENAMIDE FUMARATE
     Indication: HIV infection
  3. BIKTARVY [Concomitant]
     Active Substance: BICTEGRAVIR SODIUM\EMTRICITABINE\TENOFOVIR ALAFENAMIDE FUMARATE
  4. DARBEPOETIN ALFA [Concomitant]
     Active Substance: DARBEPOETIN ALFA
  5. ARANESP [Concomitant]
     Active Substance: DARBEPOETIN ALFA

REACTIONS (10)
  - Acute kidney injury [Recovered/Resolved]
  - Acute kidney injury [Recovered/Resolved]
  - Acute kidney injury [Recovered/Resolved]
  - End stage renal disease [Recovered/Resolved]
  - Chronic kidney disease [Not Recovered/Not Resolved]
  - Nephrogenic anaemia [Not Recovered/Not Resolved]
  - Renal failure [Not Recovered/Not Resolved]
  - Economic problem [Unknown]
  - Emotional distress [Unknown]
  - Pain [Unknown]

NARRATIVE: CASE EVENT DATE: 20130906
